FAERS Safety Report 6210791-5 (Version None)
Quarter: 2009Q2

REPORT INFORMATION
  Report Type: 
  Country: None (occurrence: None)
  Receive Date: 20090601
  Receipt Date: 20090521
  Transmission Date: 20091009
  Serious: Yes (Other)
  Sender: FDA-Public Use
  Company Number: US-AVENTIS-200913279US

PATIENT
  Sex: Male
  Weight: 127.01 kg

DRUGS (2)
  1. LANTUS [Suspect]
     Route: 058
     Dates: start: 20070101
  2. APIDRA [Suspect]
     Dosage: DOSE: THREE TIMES 20 UNITS, 16 UNITS, 28 UNITS
     Route: 058
     Dates: start: 20070101

REACTIONS (3)
  - BLINDNESS UNILATERAL [None]
  - VISUAL ACUITY REDUCED [None]
  - WEIGHT INCREASED [None]
